FAERS Safety Report 7718362-6 (Version None)
Quarter: 2011Q3

REPORT INFORMATION
  Report Type: 
  Country: None (occurrence: None)
  Receive Date: 20110830
  Receipt Date: 20110826
  Transmission Date: 20111222
  Serious: Yes (Life-Threatening, Hospitalization, Other)
  Sender: FDA-Public Use
  Company Number: PHHY2011DE68429

PATIENT
  Sex: Male
  Weight: 57 kg

DRUGS (4)
  1. AFINITOR [Suspect]
     Indication: RENAL CELL CARCINOMA
     Dosage: 10 MG PER DAY
     Route: 048
     Dates: start: 20110428, end: 20110506
  2. METOPROLOL TARTRATE [Concomitant]
     Indication: HYPERTENSION
     Dosage: 95 MG, PER DAY
     Route: 048
  3. OMEPRAZOLE [Concomitant]
     Indication: HIATUS HERNIA
     Dosage: 80 MG PER DAY
     Route: 048
  4. ACE INHIBITOR NOS [Concomitant]
     Dosage: UNK UKN, UNK

REACTIONS (16)
  - RESPIRATORY TRACT CONGESTION [None]
  - INTERSTITIAL LUNG DISEASE [None]
  - CHEST X-RAY ABNORMAL [None]
  - HYPOVENTILATION [None]
  - GENERAL PHYSICAL CONDITION ABNORMAL [None]
  - CACHEXIA [None]
  - HAEMOPTYSIS [None]
  - PULMONARY GRANULOMA [None]
  - HAEMORRHAGE [None]
  - COAGULOPATHY [None]
  - PLEURAL DISORDER [None]
  - EMPHYSEMA [None]
  - EFFUSION [None]
  - ANAEMIA [None]
  - LUNG HYPERINFLATION [None]
  - PULMONARY MASS [None]
